FAERS Safety Report 6445959-6 (Version None)
Quarter: 2009Q4

REPORT INFORMATION
  Report Type: 
  Country: None (occurrence: None)
  Receive Date: 20091119
  Receipt Date: 20090325
  Transmission Date: 20100525
  Serious: No
  Sender: FDA-Public Use
  Company Number: A0776458A

PATIENT
  Age: 43 Year
  Sex: Female

DRUGS (4)
  1. BUPROPION HCL [Suspect]
     Indication: DEPRESSION
     Dosage: 200MG TWICE PER DAY
     Route: 048
     Dates: start: 20081201, end: 20090310
  2. BUPROPION HCL [Suspect]
     Route: 048
     Dates: start: 20081201, end: 20090310
  3. BUPROPION HYDROCHLORIDE [Suspect]
     Indication: DEPRESSION
     Dosage: 300MG PER DAY
     Route: 048
     Dates: start: 20081201, end: 20090310
  4. NO CONCURRENT MEDICATIONS [Concomitant]

REACTIONS (2)
  - ALOPECIA [None]
  - MEMORY IMPAIRMENT [None]
